FAERS Safety Report 13749271 (Version 1)
Quarter: 2017Q3

REPORT INFORMATION
  Report Type: Spontaneous
  Country: US (occurrence: US)
  Receive Date: 20170713
  Receipt Date: 20170713
  Transmission Date: 20171127
  Serious: No
  Sender: FDA-Public Use
  Company Number: US-GLAXOSMITHKLINE-US2017104415

PATIENT
  Sex: Female

DRUGS (1)
  1. FLONASE [Suspect]
     Active Substance: FLUTICASONE PROPIONATE
     Indication: MIGRAINE
     Dosage: UNK

REACTIONS (3)
  - Product package associated injury [Recovering/Resolving]
  - Drug effective for unapproved indication [Unknown]
  - Product use in unapproved indication [Unknown]
